FAERS Safety Report 9404337 (Version 1)
Quarter: 2013Q3

REPORT INFORMATION
  Report Type: Spontaneous
  Country: US (occurrence: None)
  Receive Date: 20130716
  Receipt Date: 20130716
  Transmission Date: 20140515
  Serious: No
  Sender: FDA-Public Use
  Company Number: None

PATIENT
  Age: 58 Year
  Sex: Male
  Weight: 92.4 kg

DRUGS (3)
  1. 5-FLUOROURACIL (5-FU) [Suspect]
  2. LEUCOVORIN CALCIUM [Suspect]
  3. OXALIPLATIN (ELOXATIN) [Suspect]

REACTIONS (6)
  - Muscular weakness [None]
  - Fatigue [None]
  - Oedema peripheral [None]
  - Anaemia [None]
  - Alcohol abuse [None]
  - Lymphocyte count decreased [None]
